FAERS Safety Report 8229173-X (Version None)
Quarter: 2012Q1

REPORT INFORMATION
  Report Type: 
  Country: None (occurrence: None)
  Receive Date: 20120322
  Receipt Date: 20120315
  Transmission Date: 20120608
  Serious: Yes (Hospitalization)
  Sender: FDA-Public Use
  Company Number: JP-PFIZER INC-2012068942

PATIENT

DRUGS (5)
  1. EPLERENONE [Suspect]
     Indication: HYPERTENSION
     Dosage: 50 MG DAILY
     Route: 048
  2. NORVASC [Concomitant]
     Dosage: UNK
     Route: 048
  3. CANDESARTAN CILEXETIL [Concomitant]
     Dosage: UNK
     Route: 048
  4. DOXAZOSIN MESYLATE [Concomitant]
     Dosage: UNK
     Route: 048
  5. LIPITOR [Concomitant]
     Dosage: UNK
     Route: 048

REACTIONS (2)
  - URINE OUTPUT INCREASED [None]
  - URINE SODIUM INCREASED [None]
